FAERS Safety Report 24394250 (Version 3)
Quarter: 2025Q1

REPORT INFORMATION
  Report Type: Report from Study
  Country: US (occurrence: US)
  Receive Date: 20241004
  Receipt Date: 20250224
  Transmission Date: 20250408
  Serious: Yes (Other)
  Sender: ABBVIE
  Company Number: US-ABBVIE-5948426

PATIENT
  Age: 73 Year
  Sex: Female

DRUGS (1)
  1. SKYRIZI [Suspect]
     Active Substance: RISANKIZUMAB-RZAA
     Indication: Psoriasis
     Route: 058
     Dates: start: 20200508

REACTIONS (3)
  - Spinal pain [Recovering/Resolving]
  - Intervertebral disc degeneration [Recovering/Resolving]
  - Peripheral nerve injury [Unknown]

NARRATIVE: CASE EVENT DATE: 20240901
